FAERS Safety Report 5594108-5 (Version None)
Quarter: 2008Q1

REPORT INFORMATION
  Report Type: 
  Country: None (occurrence: None)
  Receive Date: 20080116
  Receipt Date: 20080109
  Transmission Date: 20080703
  Serious: Yes (Hospitalization)
  Sender: FDA-Public Use
  Company Number: GB-PFIZER INC-2008002683

PATIENT
  Age: 47 Year
  Sex: Male

DRUGS (1)
  1. CHANTIX [Suspect]
     Indication: SMOKING CESSATION THERAPY
     Route: 048
     Dates: start: 20071125, end: 20071209

REACTIONS (3)
  - PHARYNGOLARYNGEAL PAIN [None]
  - RASH ERYTHEMATOUS [None]
  - RASH GENERALISED [None]
